FAERS Safety Report 4418566-4 (Version None)
Quarter: 2004Q3

REPORT INFORMATION
  Report Type: 
  Country: None (occurrence: None)
  Receive Date: 20040809
  Receipt Date: 20040608
  Transmission Date: 20050211
  Serious: No
  Sender: FDA-Public Use
  Company Number: US-GLAXOSMITHKLINE-A0513813A

PATIENT
  Sex: Female

DRUGS (2)
  1. PAXIL CR [Suspect]
     Dosage: 37.5MG PER DAY
     Route: 048
     Dates: start: 20030101
  2. POTASSIUM [Concomitant]

REACTIONS (4)
  - ANXIETY [None]
  - ELECTRIC SHOCK [None]
  - HEADACHE [None]
  - NAUSEA [None]
